FAERS Safety Report 13513882 (Version 1)
Quarter: 2017Q2

REPORT INFORMATION
  Report Type: Spontaneous
  Country: US (occurrence: US)
  Receive Date: 20170504
  Receipt Date: 20170504
  Transmission Date: 20170830
  Serious: No
  Sender: FDA-Public Use
  Company Number: US-BAYER-2017-084555

PATIENT
  Age: 52 Year
  Sex: Female
  Weight: 52.16 kg

DRUGS (9)
  1. CLARITIN [Suspect]
     Active Substance: LORATADINE
     Indication: PRURITUS
     Dosage: 10 MG, QD
  2. BACLOFEN. [Concomitant]
     Active Substance: BACLOFEN
     Indication: LEG AMPUTATION
  3. NORTRIPTYLIN [Concomitant]
     Active Substance: NORTRIPTYLINE
     Indication: NEURALGIA
     Dosage: 50 MG, QD
     Dates: start: 20170317
  4. LYRICA [Concomitant]
     Active Substance: PREGABALIN
     Indication: LEG AMPUTATION
  5. BACLOFEN. [Concomitant]
     Active Substance: BACLOFEN
     Indication: MYALGIA
     Dosage: 20 MG, QID
     Dates: start: 201612
  6. TOPAMAX [Concomitant]
     Active Substance: TOPIRAMATE
  7. XARELTO [Suspect]
     Active Substance: RIVAROXABAN
     Indication: THROMBOSIS
     Dosage: 20 MG, QD
     Dates: start: 201609, end: 20170411
  8. CYMBALTA [Concomitant]
     Active Substance: DULOXETINE HYDROCHLORIDE
  9. LYRICA [Concomitant]
     Active Substance: PREGABALIN
     Indication: NEURALGIA
     Dosage: 50 MG, BID

REACTIONS (4)
  - Swelling [None]
  - Swelling face [None]
  - Muscle spasms [None]
  - Drug ineffective [None]
